FAERS Safety Report 16424062 (Version 1)
Quarter: 2019Q2

REPORT INFORMATION
  Report Type: Spontaneous
  Country: DE (occurrence: DE)
  Receive Date: 20190613
  Receipt Date: 20190613
  Transmission Date: 20190711
  Serious: Yes (Other)
  Sender: FDA-Public Use
  Company Number: DE-ALKEM LABORATORIES LIMITED-DE-ALKEM-2019-04988

PATIENT
  Age: 1 Day
  Sex: Female
  Weight: 2.06 kg

DRUGS (4)
  1. QUETIAPINE FUMARATE. [Suspect]
     Active Substance: QUETIAPINE FUMARATE
     Dosage: UNKNOWN
     Route: 064
  2. ACTRAPID [Suspect]
     Active Substance: INSULIN HUMAN
     Dosage: UNKNOWN
     Route: 064
  3. VALDOXAN [Suspect]
     Active Substance: AGOMELATINE
     Dosage: UNKNOWN
     Route: 064
  4. PROTAPHANE [Suspect]
     Active Substance: INSULIN HUMAN
     Dosage: UNKNOWN
     Route: 064

REACTIONS (4)
  - Respiratory disorder neonatal [Recovered/Resolved]
  - Bradycardia neonatal [Recovered/Resolved]
  - Selective eating disorder [Recovered/Resolved]
  - Foetal exposure during pregnancy [Unknown]

NARRATIVE: CASE EVENT DATE: 20181012
